FAERS Safety Report 11746012 (Version 1)
Quarter: 2015Q4

REPORT INFORMATION
  Report Type: Spontaneous
  Country: US (occurrence: US)
  Receive Date: 20151117
  Receipt Date: 20151117
  Transmission Date: 20160304
  Serious: No
  Sender: FDA-Public Use
  Company Number: US-PFIZER INC-2015377993

PATIENT
  Age: 86 Year
  Sex: Female
  Weight: 91 kg

DRUGS (6)
  1. ALPHAGAN P [Concomitant]
     Active Substance: BRIMONIDINE TARTRATE
     Indication: GLAUCOMA
     Dosage: 3 DF, 2X/DAY; 3 DROPS EACH EYE
     Route: 031
  2. INSULIN [Concomitant]
     Active Substance: INSULIN NOS
     Indication: DIABETES MELLITUS
     Dosage: 24 DF, 1X/DAY 24 UNITS
     Route: 058
  3. TRAVATAN [Concomitant]
     Active Substance: TRAVOPROST
     Indication: GLAUCOMA
     Dosage: 3 DF, 2X/DAY; 3 DROPS EACH EYE
     Route: 031
  4. PILOCARPINE HYDROCHLORIDE. [Concomitant]
     Active Substance: PILOCARPINE HYDROCHLORIDE
     Indication: OCULAR DISCOMFORT
     Dosage: 3 DF, 3X/DAY; 3 DROPS  EACH EYE
     Route: 031
  5. DORZOLAMIDE [Concomitant]
     Active Substance: DORZOLAMIDE
     Indication: GLAUCOMA
     Dosage: 3 DF, 2X/DAY, 3 DROPS EACH EYE
     Route: 031
  6. ADVIL PM [Suspect]
     Active Substance: DIPHENHYDRAMINE CITRATE\IBUPROFEN
     Indication: INSOMNIA
     Dosage: 2 DF, TABLETS (38MG-200MG) BY MOUTH ABOUT AN HOUR BEFORE BED
     Route: 048
     Dates: start: 201510

REACTIONS (1)
  - Visual impairment [Not Recovered/Not Resolved]

NARRATIVE: CASE EVENT DATE: 201510
